FAERS Safety Report 24656575 (Version 1)
Quarter: 2024Q4

REPORT INFORMATION
  Report Type: Spontaneous
  Country: GB (occurrence: GB)
  Receive Date: 20241124
  Receipt Date: 20241124
  Transmission Date: 20250115
  Serious: Yes (Hospitalization, Other)
  Sender: TEVA
  Company Number: None

PATIENT
  Age: 53 Year
  Sex: Male

DRUGS (7)
  1. ARIPIPRAZOLE [Suspect]
     Active Substance: ARIPIPRAZOLE
     Indication: Hallucination, auditory
     Route: 065
     Dates: start: 20240905
  2. ATORVASTATIN [Concomitant]
     Active Substance: ATORVASTATIN
     Dosage: ON
  3. PROMETHAZINE HYDROCHLORIDE [Concomitant]
     Active Substance: PROMETHAZINE HYDROCHLORIDE
     Dosage: 2 ON PRN - TAKES MOST NIGHTS PAGE 3 OF 3 - MIDATABANK ADR REPORT
  4. SULPIRIDE [Concomitant]
     Active Substance: SULPIRIDE
     Dosage: BD OM/ON
  5. TOLTERODINE TARTRATE [Concomitant]
     Active Substance: TOLTERODINE TARTRATE
     Dosage: TOLTHEN XL,  MODIFIED-RELEASE CAPSULES  OM,
  6. PAROXETINE [Concomitant]
     Active Substance: PAROXETINE
     Dosage: OM
  7. PROCYCLIDINE [Concomitant]
     Active Substance: PROCYCLIDINE
     Dosage: BD OM/ON,

REACTIONS (4)
  - Orthostatic hypotension [Recovered/Resolved]
  - Palpitations [Unknown]
  - Chest discomfort [Unknown]
  - Dizziness [Unknown]
